FAERS Safety Report 8089225-4 (Version None)
Quarter: 2012Q1

REPORT INFORMATION
  Report Type: 
  Country: None (occurrence: None)
  Receive Date: 20120128
  Receipt Date: 20110708
  Transmission Date: 20120608
  Serious: No
  Sender: FDA-Public Use
  Company Number: US-ABBOTT-11P-163-0837419-00

PATIENT
  Age: 43 Year
  Sex: Female

DRUGS (4)
  1. SYNTHROID [Concomitant]
     Indication: PRODUCT USED FOR UNKNOWN INDICATION
     Dosage: 90 MCG DAILY FOR 5 YEARS
  2. PROPRANOLOL [Concomitant]
     Indication: HYPERTENSION
     Dosage: 80 MG, DAILY FOR 5 YEARS
  3. HUMIRA [Suspect]
     Indication: ANKYLOSING SPONDYLITIS
     Dates: start: 20110101
  4. OXYCONTIN [Concomitant]
     Indication: PAIN
     Dosage: PRN

REACTIONS (1)
  - RASH [None]
